FAERS Safety Report 4500311-5 (Version None)
Quarter: 2004Q4

REPORT INFORMATION
  Report Type: 
  Country: None (occurrence: None)
  Receive Date: 20041112
  Receipt Date: 20041105
  Transmission Date: 20050328
  Serious: Yes (Other)
  Sender: FDA-Public Use
  Company Number: PHNU2004DE03769

PATIENT
  Sex: Female

DRUGS (1)
  1. ELIDEL [Suspect]
     Indication: NEURODERMATITIS
     Route: 061
     Dates: start: 20040101

REACTIONS (7)
  - APPLICATION SITE BURNING [None]
  - BLISTER [None]
  - HERPES SIMPLEX [None]
  - HERPES ZOSTER [None]
  - NEURODERMATITIS [None]
  - OEDEMA PERIPHERAL [None]
  - PRURITUS [None]
